FAERS Safety Report 14610176 (Version 3)
Quarter: 2019Q1

REPORT INFORMATION
  Report Type: Spontaneous
  Country: GB (occurrence: FR)
  Receive Date: 20180307
  Receipt Date: 20190314
  Transmission Date: 20190417
  Serious: Yes (Hospitalization, Other)
  Sender: FDA-Public Use
  Company Number: FR-FRESENIUS KABI-FK201802472

PATIENT
  Age: 34 Year
  Sex: Female
  Weight: 54 kg

DRUGS (24)
  1. SMOFLIPID [Suspect]
     Active Substance: FISH OIL\MEDIUM-CHAIN TRIGLYCERIDES\OLIVE OIL\SOYBEAN OIL
     Dosage: BAG ENDING WITH 002E, DOSE RE-INTRODUCED
     Route: 042
  2. POTASSIUM CHLORIDE (MANUFACTURER UNKNOWN) [Suspect]
     Active Substance: POTASSIUM CHLORIDE
     Indication: MALNUTRITION
     Dosage: POTASSIUM CHLORIDE 10, 500ML, BAG ENDING WITH 002KE, DOSE RE-INTRODUCED
     Route: 042
  3. POTASSIUM CHLORIDE (MANUFACTURER UNKNOWN) [Suspect]
     Active Substance: POTASSIUM CHLORIDE
     Dosage: POTASSIUM CHLORIDE 10, 500ML, BAG ENDING WITH 002KE
     Route: 042
  4. PHYTOMENADIONE [Suspect]
     Active Substance: PHYTONADIONE
     Indication: MALNUTRITION
     Dosage: BAG ENDING WITH 002KE, DOSE RE-INTRODUCED ()
     Route: 042
  5. GLUCOSE 1-PHOSPHATE DISODIUM [Suspect]
     Active Substance: .ALPHA.-GLUCOSE-1-PHOSPHATE
     Indication: MALNUTRITION
     Dosage: PHOCYTAN VIAL (PO4),BAG ENDING WITH 002KE (002E), DOSE RE-INTRODUCED
     Route: 042
  6. GLYCEROL/PHENOL/MAGNESIUM SULFATE [Suspect]
     Active Substance: GLYCERIN\MAGNESIUM SULFATE\PHENOL
     Indication: MALNUTRITION
     Dosage: BAG ENDING WITH 002E (002KE), DOSE RE-INTRODUCED ()
     Route: 042
  7. AMINO ACIDS NOS [Suspect]
     Active Substance: AMINO ACIDS
     Indication: MALNUTRITION
     Dosage: BAG ENDING WITH 002KE (002E), DOSE RE-INTRODUCED ()
     Route: 042
  8. PHYTOMENADIONE [Suspect]
     Active Substance: PHYTONADIONE
     Indication: PRODUCT USED FOR UNKNOWN INDICATION
     Dosage: BAG ENDING WITH 002KE, DOSE RE-INTRODUCED
     Route: 042
  9. SMOFLIPID [Suspect]
     Active Substance: FISH OIL\MEDIUM-CHAIN TRIGLYCERIDES\OLIVE OIL\SOYBEAN OIL
     Indication: PARENTERAL NUTRITION
     Dosage: BAG ENDING WITH 002KE,50G
     Route: 042
  10. SMOFLIPID [Suspect]
     Active Substance: FISH OIL\MEDIUM-CHAIN TRIGLYCERIDES\OLIVE OIL\SOYBEAN OIL
     Dosage: BAG ENDING WITH 002KE, DOSE RE-INTRODUCED
     Route: 042
  11. POTASSIUM CHLORIDE (MANUFACTURER UNKNOWN) [Suspect]
     Active Substance: POTASSIUM CHLORIDE
     Dosage: POTASSIUM CHLORIDE 10, 500ML, BAG ENDING WITH 002E, DOSE RE-INTRODUCED ()
     Route: 042
  12. POTASSIUM CHLORIDE (MANUFACTURER UNKNOWN) [Suspect]
     Active Substance: POTASSIUM CHLORIDE
     Dosage: POTASSIUM CHLORIDE 10, 500ML, BAG ENDING WITH 002E
     Route: 042
  13. TOCOPHERYL ACETATE [Suspect]
     Active Substance: .ALPHA.-TOCOPHEROL ACETATE
     Indication: MALNUTRITION
     Dosage: BAG ENDING WITH 002KE (002E), DOSE RE-INTRODUCED ()
     Route: 042
  14. SODIUM CHLORIDE (MANUFACTURER UNKNOWN) [Suspect]
     Active Substance: SODIUM CHLORIDE
     Indication: MALNUTRITION
     Dosage: SODIUM CHLORIDE 20% 500ML, BAG ENDING WITH 002KE
     Route: 042
  15. SELENIUM [Suspect]
     Active Substance: SELENIUM
     Indication: MALNUTRITION
     Dosage: BAG ENDING WITH 002E, BAG ENDING WITH 002KE, DOSE RE-INTRODUCED ()
     Route: 042
  16. ZINC. [Suspect]
     Active Substance: ZINC
     Indication: MALNUTRITION
     Dosage: BAG ENDING WITH 002KE, DOSE RE-INTRODUCED ()
     Route: 042
  17. CALCIUM GLUCONATE. [Suspect]
     Active Substance: CALCIUM GLUCONATE
     Indication: MALNUTRITION
     Dosage: CALCIUM GLUCONATE 500 ML 10%, BAG ENDING WITH 002E (002KE)
     Route: 042
  18. ASCORBIC ACID/PYRIDOXINE HYDROCHLORIDE/BIOTIN/TOCOPHEROL/FOLIC ACID/COLECALCIFEROL/CYANOCOBALAMIN/RE [Suspect]
     Active Substance: VITAMINS
     Indication: MALNUTRITION
     Dosage: DOSE: ONE UNIT, BAG ENDING WITH 002KE (), 002E (1), DOSE RE-INTRODUCED ()
     Route: 042
  19. SODIUM CHLORIDE (MANUFACTURER UNKNOWN) [Suspect]
     Active Substance: SODIUM CHLORIDE
     Dosage: SODIUM CHLORIDE 20% 500ML, BAG ENDING WITH 002E
     Route: 042
  20. GLUCOSE (MANUFACTURER UNKNOWN) [Suspect]
     Active Substance: DEXTROSE
     Indication: MALNUTRITION
     Dosage: 280G QD
     Route: 042
  21. SODIUM CHLORIDE (MANUFACTURER UNKNOWN) [Suspect]
     Active Substance: SODIUM CHLORIDE
     Dosage: SODIUM CHLORIDE 20% 500ML, BAG ENDING WITH 002KE, DOSE RE-INTRODUCED ()
     Route: 042
  22. FERROUS GLUCONATE/COPPER GLUCONATE/ZINC GLUCONATE/MANGANESE GLUCONATE/SODIUM MOLYBDATE/POTASSIUM IOD [Suspect]
     Active Substance: ELECTROLYTES NOS\MINERALS
     Indication: PARENTERAL NUTRITION
     Dosage: 1 IU
     Route: 042
  23. SMOFLIPID [Suspect]
     Active Substance: FISH OIL\MEDIUM-CHAIN TRIGLYCERIDES\OLIVE OIL\SOYBEAN OIL
     Indication: MALNUTRITION
     Dosage: BAG ENDING WITH 002E,50G, QD
     Route: 042
  24. SODIUM CHLORIDE (MANUFACTURER UNKNOWN) [Suspect]
     Active Substance: SODIUM CHLORIDE
     Dosage: SODIUM CHLORIDE 20% 500ML, BAG ENDING WITH 002E, DOSE RE-INTRODUCED ()
     Route: 042

REACTIONS (4)
  - Exposure during pregnancy [Recovered/Resolved]
  - Enterobacter infection [Recovered/Resolved]
  - Pyrexia [Recovered/Resolved]
  - Suspected transmission of an infectious agent via product [Recovered/Resolved]

NARRATIVE: CASE EVENT DATE: 20170404
